FAERS Safety Report 6172701-9 (Version None)
Quarter: 2009Q2

REPORT INFORMATION
  Report Type: 
  Country: None (occurrence: None)
  Receive Date: 20090428
  Receipt Date: 20090414
  Transmission Date: 20091009
  Serious: Yes (Hospitalization, Other)
  Sender: FDA-Public Use
  Company Number: 220001M04GBR

PATIENT
  Age: 13 Year
  Sex: Female

DRUGS (4)
  1. SAIZEN [Suspect]
     Indication: GROWTH HORMONE DEFICIENCY
     Dosage: 1.2 MG, 1 IN 1 DAYS, SUBCUTANEOUS; 0.58, SUBCUTANEOUS
     Route: 058
     Dates: start: 19990112, end: 20040101
  2. SAIZEN [Suspect]
     Indication: GROWTH HORMONE DEFICIENCY
     Dosage: 1.2 MG, 1 IN 1 DAYS, SUBCUTANEOUS; 0.58, SUBCUTANEOUS
     Route: 058
     Dates: start: 20040101, end: 20060901
  3. SAIZEN [Suspect]
     Indication: GROWTH HORMONE DEFICIENCY
     Dosage: 1.2 MG, 1 IN 1 DAYS, SUBCUTANEOUS; 0.58, SUBCUTANEOUS
     Route: 058
     Dates: start: 20070101, end: 20070801
  4. LEVOTHYROXINE SODIUM [Concomitant]

REACTIONS (4)
  - BRAIN NEOPLASM [None]
  - MENINGIOMA [None]
  - POST PROCEDURAL COMPLICATION [None]
  - TRANSIENT ISCHAEMIC ATTACK [None]
